FAERS Safety Report 4340010-6 (Version None)
Quarter: 2004Q2

REPORT INFORMATION
  Report Type: 
  Country: None (occurrence: None)
  Receive Date: 20040416
  Receipt Date: 20040317
  Transmission Date: 20050107
  Serious: Yes (Life-Threatening, Hospitalization)
  Sender: FDA-Public Use
  Company Number: JP-MERCK-0403USA01717

PATIENT
  Age: 74 Year
  Sex: Male
  Weight: 53 kg

DRUGS (6)
  1. AMLODIPINE BESYLATE [Concomitant]
     Indication: HYPERTENSION
     Route: 048
     Dates: start: 20030808
  2. CANDESARTAN CILEXETIL [Concomitant]
     Route: 048
     Dates: end: 20040101
  3. GLYBURIDE [Concomitant]
     Indication: DIABETIC NEPHROPATHY
     Route: 048
     Dates: start: 20001217
  4. COZAAR [Suspect]
     Indication: HYPERTENSION
     Route: 048
     Dates: start: 20040101, end: 20040316
  5. RANITIDINE HYDROCHLORIDE [Concomitant]
     Indication: GASTRIC ULCER
     Route: 048
     Dates: start: 20030818, end: 20040405
  6. TROXIPIDE [Concomitant]
     Indication: GASTRIC ULCER
     Route: 048
     Dates: start: 20040114, end: 20040316

REACTIONS (5)
  - BLOOD CREATININE INCREASED [None]
  - DIALYSIS [None]
  - ELECTROCARDIOGRAM ABNORMAL [None]
  - ELECTROCARDIOGRAM T WAVE AMPLITUDE INCREASED [None]
  - HYPERKALAEMIA [None]
